FAERS Safety Report 9404367 (Version 2)
Quarter: 2013Q3

REPORT INFORMATION
  Report Type: Spontaneous
  Country: US (occurrence: US)
  Receive Date: 20130717
  Receipt Date: 20130807
  Transmission Date: 20140515
  Serious: Yes (Disabling, Other)
  Sender: FDA-Public Use
  Company Number: US-JNJFOC-20130705600

PATIENT
  Age: 65 Year
  Sex: Male
  Weight: 78.02 kg

DRUGS (5)
  1. LEVAQUIN [Suspect]
     Indication: BRONCHITIS
     Route: 048
     Dates: start: 20070407, end: 20070413
  2. CIPRO [Suspect]
     Indication: DIVERTICULITIS
     Route: 048
     Dates: start: 20070828, end: 20070830
  3. ATENOLOL [Concomitant]
     Indication: HYPERTENSION
     Route: 048
     Dates: start: 1995
  4. GUAIFENESIN [Concomitant]
     Indication: COUGH
     Route: 065
     Dates: start: 200704, end: 200704
  5. TYLENOL [Concomitant]
     Indication: PAIN
     Route: 065
     Dates: start: 200704, end: 200704

REACTIONS (3)
  - Tendon rupture [Not Recovered/Not Resolved]
  - Tendon disorder [Not Recovered/Not Resolved]
  - Diverticulitis [Unknown]
